FAERS Safety Report 6956934-7 (Version None)
Quarter: 2010Q3

REPORT INFORMATION
  Report Type: 
  Country: None (occurrence: None)
  Receive Date: 20100826
  Receipt Date: 20100813
  Transmission Date: 20110219
  Serious: Yes (Life-Threatening)
  Sender: FDA-Public Use
  Company Number: UTC-001336

PATIENT

DRUGS (1)
  1. REMODULIN [Suspect]
     Indication: PULMONARY ARTERIAL HYPERTENSION
     Dosage: INTRAVENOUS
     Route: 042

REACTIONS (3)
  - DRUG ADMINISTRATION ERROR [None]
  - HYPOTENSION [None]
  - MEDICATION ERROR [None]
